FAERS Safety Report 17320773 (Version 1)
Quarter: 2020Q1

REPORT INFORMATION
  Report Type: Other
  Country: US (occurrence: US)
  Receive Date: 20200126
  Receipt Date: 20200126
  Transmission Date: 20200409
  Serious: No
  Sender: FDA-Public Use
  Company Number: US-ACORDA-ACO_158110_2019

PATIENT
  Sex: Female

DRUGS (1)
  1. AMPYRA [Suspect]
     Active Substance: DALFAMPRIDINE
     Indication: MULTIPLE SCLEROSIS
     Dosage: 10 MILLIGRAM, BID
     Route: 048
     Dates: start: 20170420

REACTIONS (6)
  - Asthenia [Unknown]
  - Nausea [Unknown]
  - Muscle fatigue [Unknown]
  - Mood swings [Unknown]
  - Fatigue [Unknown]
  - Irritability [Unknown]
